FAERS Safety Report 8448260-4 (Version None)
Quarter: 2012Q2

REPORT INFORMATION
  Report Type: 
  Country: None (occurrence: None)
  Receive Date: 20120619
  Receipt Date: 20120618
  Transmission Date: 20120825
  Serious: Yes (Hospitalization)
  Sender: FDA-Public Use
  Company Number: JP-EISAI INC-E2020-10834-SPO-JP

PATIENT
  Age: 94 Year
  Sex: Female

DRUGS (7)
  1. NORVASC [Suspect]
     Route: 048
  2. RABEPRAZOLE SODIUM [Concomitant]
     Route: 048
  3. ARICEPT [Suspect]
     Indication: DEMENTIA ALZHEIMER'S TYPE
     Route: 048
     Dates: start: 20090101, end: 20111101
  4. VIVIANT [Concomitant]
     Route: 048
  5. CANDESARTAN CILEXETIL [Concomitant]
     Route: 048
  6. ARICEPT [Suspect]
     Route: 048
     Dates: start: 20111101, end: 20120525
  7. LUVOX [Concomitant]
     Route: 048

REACTIONS (1)
  - ATRIOVENTRICULAR BLOCK COMPLETE [None]
